FAERS Safety Report 14554712 (Version 3)
Quarter: 2018Q2

REPORT INFORMATION
  Report Type: Report from Study
  Country: JP (occurrence: JP)
  Receive Date: 20180220
  Receipt Date: 20180426
  Transmission Date: 20180711
  Serious: Yes (Hospitalization)
  Sender: FDA-Public Use
  Company Number: JP-EISAI MEDICAL RESEARCH-EC-2018-036304

PATIENT
  Age: 70 Year
  Sex: Female
  Weight: 60 kg

DRUGS (6)
  1. FYCOMPA [Suspect]
     Active Substance: PERAMPANEL
     Indication: PARTIAL SEIZURES
     Route: 048
     Dates: start: 20170913, end: 20170919
  2. FYCOMPA [Suspect]
     Active Substance: PERAMPANEL
     Indication: EPILEPSY
  3. EXCEGRAN [Concomitant]
     Active Substance: ZONISAMIDE
  4. THYRADIN S [Concomitant]
     Active Substance: LEVOTHYROXINE SODIUM
  5. DEPAKENE [Concomitant]
     Active Substance: VALPROIC ACID
  6. E KEPPRA [Concomitant]
     Active Substance: LEVETIRACETAM

REACTIONS (1)
  - Abnormal behaviour [Recovered/Resolved]

NARRATIVE: CASE EVENT DATE: 20170918
